FAERS Safety Report 6334861-6 (Version None)
Quarter: 2009Q3

REPORT INFORMATION
  Report Type: 
  Country: None (occurrence: None)
  Receive Date: 20090828
  Receipt Date: 20090828
  Transmission Date: 20100115
  Serious: No
  Sender: FDA-Public Use
  Company Number: None

PATIENT
  Sex: Female
  Weight: 92.9874 kg

DRUGS (2)
  1. AMANTADINE HCL [Suspect]
     Indication: PARKINSON'S DISEASE
     Dosage: 1 CAPSUEL 2X DAY  ORAL
     Route: 048
     Dates: start: 20090703
  2. REQUIP [Suspect]
     Indication: PARKINSON'S DISEASE
     Dosage: 2 TABS 3X DAY ORAL
     Route: 048
     Dates: start: 20090617

REACTIONS (3)
  - ERYTHEMA [None]
  - OEDEMA PERIPHERAL [None]
  - PAIN [None]
